FAERS Safety Report 9176098 (Version 1)
Quarter: 2013Q1

REPORT INFORMATION
  Report Type: Spontaneous
  Country: BR (occurrence: BR)
  Receive Date: 20130320
  Receipt Date: 20130320
  Transmission Date: 20140127
  Serious: Yes (Other)
  Sender: FDA-Public Use
  Company Number: PHHY2012BR076610

PATIENT
  Sex: Male

DRUGS (2)
  1. DIOVAN HCT [Suspect]
     Indication: HYPERTENSION
     Dosage: 1 TABLET (160/12.5 MG), DAILY
     Route: 048
  2. PARATRAN [Concomitant]
     Indication: PAIN
     Dosage: 2 TABLETS (325/37.5 MG), DAILY
     Route: 048
     Dates: start: 2012

REACTIONS (4)
  - Intervertebral disc protrusion [Recovered/Resolved]
  - Blood pressure increased [Recovered/Resolved]
  - Dysstasia [Recovered/Resolved]
  - Dizziness [Recovered/Resolved]
